FAERS Safety Report 15932535 (Version 1)
Quarter: 2019Q1

REPORT INFORMATION
  Report Type: Spontaneous
  Country: TW (occurrence: TW)
  Receive Date: 20190207
  Receipt Date: 20190207
  Transmission Date: 20190417
  Serious: Yes (Other)
  Sender: FDA-Public Use
  Company Number: TW-PFIZER INC-2019014338

PATIENT
  Age: 51 Year
  Sex: Female

DRUGS (1)
  1. XYNTHA [Suspect]
     Active Substance: ANTIHEMOPHILIC FACTOR, HUMAN RECOMBINANT RESIDUES 743-1636 DELETED
     Dosage: 1000 IU, USE FOR THREE CONSECUTIVE DAYS
     Route: 042
     Dates: start: 201901

REACTIONS (3)
  - Wound infection [Unknown]
  - Wound complication [Not Recovered/Not Resolved]
  - Pyrexia [Not Recovered/Not Resolved]
